FAERS Safety Report 5062818-4 (Version None)
Quarter: 2006Q3

REPORT INFORMATION
  Report Type: 
  Country: None (occurrence: None)
  Receive Date: 20060724
  Receipt Date: 20060724
  Transmission Date: 20061208
  Serious: No
  Sender: FDA-Public Use
  Company Number: None

PATIENT
  Age: 35 Year
  Sex: Female
  Weight: 49.8957 kg

DRUGS (1)
  1. LEVAQUIN [Suspect]
     Indication: SINUSITIS
     Dosage: 500MG ONCE A DAY PO
     Route: 048
     Dates: start: 20010206, end: 20010216

REACTIONS (6)
  - BACK PAIN [None]
  - JOINT SPRAIN [None]
  - LIGAMENT DISORDER [None]
  - NECK PAIN [None]
  - POLYARTHRITIS [None]
  - TENDON DISORDER [None]
